FAERS Safety Report 17897409 (Version 1)
Quarter: 2020Q2

REPORT INFORMATION
  Report Type: Spontaneous
  Country: CA (occurrence: CA)
  Receive Date: 20200615
  Receipt Date: 20200615
  Transmission Date: 20200714
  Serious: Yes (Other)
  Sender: FDA-Public Use
  Company Number: CA-NOVOPROD-732475

PATIENT
  Sex: Female

DRUGS (3)
  1. LEVEMIR [Suspect]
     Active Substance: INSULIN DETEMIR
     Indication: TYPE 2 DIABETES MELLITUS
     Dosage: UNK
     Route: 065
  2. GABAPENTIN. [Suspect]
     Active Substance: GABAPENTIN
     Indication: NEURALGIA
     Dosage: UNK
     Route: 065
  3. BASAGLAR [Suspect]
     Active Substance: INSULIN GLARGINE
     Indication: TYPE 2 DIABETES MELLITUS
     Dosage: 18 U QHS
     Route: 065

REACTIONS (13)
  - Sciatica [Unknown]
  - Blood glucose increased [Unknown]
  - Dysphagia [Unknown]
  - Dyspnoea [Unknown]
  - Pruritus [Unknown]
  - Neuralgia [Unknown]
  - Onychoclasis [Unknown]
  - Vision blurred [Unknown]
  - Diabetic foot [Unknown]
  - Swelling [Unknown]
  - Muscle spasms [Unknown]
  - Anxiety [Unknown]
  - Pharyngeal swelling [Unknown]

NARRATIVE: CASE EVENT DATE: 202004
